FAERS Safety Report 4827861-6 (Version None)
Quarter: 2005Q4

REPORT INFORMATION
  Report Type: 
  Country: None (occurrence: None)
  Receive Date: 20051114
  Receipt Date: 20051114
  Transmission Date: 20060501
  Serious: Yes (Life-Threatening)
  Sender: FDA-Public Use
  Company Number: None

PATIENT
  Age: 43 Year
  Sex: Female

DRUGS (1)
  1. LORAZEPAM [Suspect]
     Indication: ALCOHOL DETOXIFICATION
     Dosage: 60-100 MG   PER HOUR   IV DRIP
     Route: 041
     Dates: start: 20050929, end: 20050930

REACTIONS (2)
  - HYPOXIA [None]
  - RESPIRATORY DEPRESSION [None]
